FAERS Safety Report 5164365-8 (Version None)
Quarter: 2006Q4

REPORT INFORMATION
  Report Type: 
  Country: None (occurrence: None)
  Receive Date: 20061129
  Receipt Date: 20061129
  Transmission Date: 20070319
  Serious: Yes (Hospitalization)
  Sender: FDA-Public Use
  Company Number: None

PATIENT
  Age: 39 Year
  Sex: Female
  Weight: 55 kg

DRUGS (15)
  1. FLOLAN [Suspect]
     Indication: PULMONARY HYPERTENSION
     Dosage: 29NG/KG/MIN  IV CONT.
     Route: 042
     Dates: start: 20020328
  2. LISINOPRIL [Concomitant]
  3. COUMADIN [Concomitant]
  4. SILDENAFIL CITRATE [Concomitant]
  5. HYDROCHLOROTHIAZIDE [Concomitant]
  6. IMODIUM [Concomitant]
  7. DIGOXIN [Concomitant]
  8. NEURONTIN [Concomitant]
  9. RESTORIL [Concomitant]
  10. XANAX [Concomitant]
  11. LEXAPRO [Concomitant]
  12. ELAVIL [Concomitant]
  13. SKELAXIN [Concomitant]
  14. K-DUR 10 [Concomitant]
  15. TYLENOL [Concomitant]

REACTIONS (8)
  - DYSPNOEA EXERTIONAL [None]
  - HYPERTHYROIDISM [None]
  - LUNG CONSOLIDATION [None]
  - LUNG NEOPLASM [None]
  - MICROCOCCUS INFECTION [None]
  - SEPTIC EMBOLUS [None]
  - SYNCOPE [None]
  - TACHYCARDIA [None]
